FAERS Safety Report 19877405 (Version 2)
Quarter: 2021Q4

REPORT INFORMATION
  Report Type: Spontaneous
  Country: US (occurrence: US)
  Receive Date: 20210924
  Receipt Date: 20211012
  Transmission Date: 20220303
  Serious: Yes (Hospitalization, Other)
  Sender: FDA-Public Use
  Company Number: US-BAXTER-2021BAX029914

PATIENT
  Age: 26 Year
  Sex: Male

DRUGS (6)
  1. DOXIL [Suspect]
     Active Substance: DOXORUBICIN HYDROCHLORIDE
     Indication: Acute lymphocytic leukaemia
     Dosage: CYCLE 1 COURSE A, HYPER-CVAD
     Route: 065
     Dates: start: 20201104, end: 20201107
  2. CYCLOPHOSPHAMIDE [Suspect]
     Active Substance: CYCLOPHOSPHAMIDE
     Indication: Acute lymphocytic leukaemia
     Dosage: CYCLE 1 COURSE A, HYPER-CVAD
     Route: 065
     Dates: start: 20201104, end: 20201107
  3. VINCRISTINE [Suspect]
     Active Substance: VINCRISTINE
     Indication: Acute lymphocytic leukaemia
     Dosage: CYCLE 1 COURSE A, HYPER-CVAD
     Route: 065
     Dates: start: 20201104, end: 20201107
  4. DEXAMETHASONE [Suspect]
     Active Substance: DEXAMETHASONE
     Indication: Acute lymphocytic leukaemia
     Dosage: CYCLE 1 COURSE A, HYPER-CVAD
     Route: 065
     Dates: start: 20201104, end: 20201107
  5. METHOTREXATE [Suspect]
     Active Substance: METHOTREXATE
     Indication: Acute lymphocytic leukaemia
     Route: 065
  6. CYTARABINE [Suspect]
     Active Substance: CYTARABINE
     Indication: Acute lymphocytic leukaemia
     Route: 065

REACTIONS (3)
  - Febrile neutropenia [Recovered/Resolved]
  - Immunodeficiency [Unknown]
  - COVID-19 [Unknown]
